FAERS Safety Report 18682877 (Version 2)
Quarter: 2021Q1

REPORT INFORMATION
  Report Type: Spontaneous
  Country: CN (occurrence: CN)
  Receive Date: 20201230
  Receipt Date: 20210107
  Transmission Date: 20210419
  Serious: Yes (Other)
  Sender: FDA-Public Use
  Company Number: CN-PFIZER INC-2020516820

PATIENT
  Age: 75 Year
  Sex: Male

DRUGS (2)
  1. NORVANCOMYCIN HYDROCHLORIDE [Suspect]
     Active Substance: NORVANCOMYCIN HYDROCHLORIDE
     Dosage: UNK
  2. MEROPENEM. [Suspect]
     Active Substance: MEROPENEM
     Dosage: UNK

REACTIONS (3)
  - Drug resistance [Unknown]
  - Bacteraemia [Unknown]
  - Pyrexia [Unknown]

NARRATIVE: CASE EVENT DATE: 2020
